FAERS Safety Report 5830795-1 (Version None)
Quarter: 2008Q3

REPORT INFORMATION
  Report Type: 
  Country: None (occurrence: None)
  Receive Date: 20080801
  Receipt Date: 20071127
  Transmission Date: 20090109
  Serious: Yes (Hospitalization)
  Sender: FDA-Public Use
  Company Number: US-BRISTOL-MYERS SQUIBB COMPANY-13996046

PATIENT
  Age: 62 Year
  Sex: Female

DRUGS (2)
  1. COUMADIN [Suspect]
  2. THALOMID [Suspect]
     Indication: MULTIPLE MYELOMA
     Dosage: CAPSULES
     Route: 048
     Dates: start: 20060829

REACTIONS (1)
  - EPISTAXIS [None]
